FAERS Safety Report 8885377 (Version 7)
Quarter: 2014Q1

REPORT INFORMATION
  Report Type: Report from Study
  Country: GB (occurrence: GB)
  Receive Date: 20121105
  Receipt Date: 20140203
  Transmission Date: 20141002
  Serious: Yes (Death, Hospitalization)
  Sender: FDA-Public Use
  Company Number: GB-SANOFI-AVENTIS-2012SA078189

PATIENT
  Age: 68 Year
  Sex: Male

DRUGS (21)
  1. AFLIBERCEPT [Suspect]
     Indication: COLORECTAL CANCER METASTATIC
     Route: 042
     Dates: start: 20120928, end: 20120928
  2. AFLIBERCEPT [Suspect]
     Indication: COLORECTAL CANCER METASTATIC
     Route: 042
     Dates: start: 20120928, end: 20120928
  3. AFLIBERCEPT [Suspect]
     Indication: COLORECTAL CANCER METASTATIC
     Route: 042
     Dates: start: 20121012, end: 20121012
  4. AFLIBERCEPT [Suspect]
     Indication: COLORECTAL CANCER METASTATIC
     Route: 042
     Dates: start: 20121012, end: 20121012
  5. 5-FU [Suspect]
     Indication: COLORECTAL CANCER METASTATIC
     Route: 040
     Dates: start: 20120928, end: 20120928
  6. 5-FU [Suspect]
     Indication: COLORECTAL CANCER METASTATIC
     Route: 042
     Dates: start: 20120928, end: 20120928
  7. 5-FU [Suspect]
     Indication: COLORECTAL CANCER METASTATIC
     Route: 040
     Dates: start: 20121012, end: 20121012
  8. 5-FU [Suspect]
     Indication: COLORECTAL CANCER METASTATIC
     Route: 042
     Dates: start: 20121012, end: 20121012
  9. IRINOTECAN [Suspect]
     Indication: COLORECTAL CANCER METASTATIC
     Route: 041
     Dates: start: 20120928, end: 20120928
  10. IRINOTECAN [Suspect]
     Indication: COLORECTAL CANCER METASTATIC
     Route: 041
     Dates: start: 20121012, end: 20121012
  11. LEUCOVORIN [Suspect]
     Indication: COLORECTAL CANCER METASTATIC
     Route: 041
     Dates: start: 20120928, end: 20120928
  12. LEUCOVORIN [Suspect]
     Indication: COLORECTAL CANCER METASTATIC
     Route: 041
     Dates: start: 20121012, end: 20121012
  13. MST [Concomitant]
     Route: 065
     Dates: start: 20120403, end: 20121026
  14. GABAPENTIN [Concomitant]
     Route: 065
     Dates: start: 20120403, end: 20121026
  15. DICLOFENAC [Concomitant]
     Route: 065
     Dates: start: 20120501, end: 20121026
  16. PARACETAMOL [Concomitant]
     Route: 065
     Dates: start: 2012, end: 20121026
  17. ORAMORPH [Concomitant]
     Route: 065
     Dates: start: 20120403, end: 20121026
  18. SIMVASTATIN [Concomitant]
     Route: 065
     Dates: start: 2009, end: 20121026
  19. LANSOPRAZOLE [Concomitant]
     Indication: PROPHYLAXIS
     Route: 065
     Dates: start: 20120501, end: 20121026
  20. METOCLOPRAMIDE [Concomitant]
     Indication: PROPHYLAXIS
     Route: 065
     Dates: start: 20120501, end: 20121026
  21. AZITHROMYCIN [Concomitant]
     Dates: start: 20121009, end: 20121026

REACTIONS (2)
  - Pneumonia aspiration [Fatal]
  - Vomiting [Recovered/Resolved]
